FAERS Safety Report 5425600-1 (Version None)
Quarter: 2007Q3

REPORT INFORMATION
  Report Type: 
  Country: None (occurrence: None)
  Receive Date: 20070824
  Receipt Date: 20070813
  Transmission Date: 20080115
  Serious: Yes (Death, Life-Threatening)
  Sender: FDA-Public Use
  Company Number: NL-PFIZER INC-2007067645

PATIENT
  Age: 63 Year
  Sex: Female

DRUGS (2)
  1. REVATIO [Suspect]
     Indication: PULMONARY HYPERTENSION
     Route: 048
  2. ANTICOAGULANTS [Concomitant]

REACTIONS (2)
  - DEATH [None]
  - HIP SURGERY [None]
